FAERS Safety Report 6470782-6 (Version None)
Quarter: 2009Q4

REPORT INFORMATION
  Report Type: 
  Country: None (occurrence: None)
  Receive Date: 20091203
  Receipt Date: 20091125
  Transmission Date: 20100525
  Serious: Yes (Other)
  Sender: FDA-Public Use
  Company Number: B0610421A

PATIENT
  Age: 12 Year
  Sex: Female

DRUGS (1)
  1. AUGMENTIN [Suspect]
     Indication: ORAL INFECTION
     Route: 048
     Dates: start: 20090601, end: 20090601

REACTIONS (4)
  - ABDOMINAL PAIN [None]
  - BRONCHOSPASM [None]
  - DIARRHOEA [None]
  - ERYTHEMA [None]
